FAERS Safety Report 9832747 (Version 3)
Quarter: 2014Q2

REPORT INFORMATION
  Report Type: Spontaneous
  Country: GB (occurrence: GB)
  Receive Date: 20140121
  Receipt Date: 20140409
  Transmission Date: 20141212
  Serious: Yes (Hospitalization, Other)
  Sender: FDA-Public Use
  Company Number: PHFR2013GB004615

PATIENT
  Age: 53 Year
  Sex: Female

DRUGS (17)
  1. MYCOPHENOLATE MOFETIL [Suspect]
     Indication: SYSTEMIC LUPUS ERYTHEMATOSUS
     Dosage: 2 G, UNK
     Route: 048
     Dates: end: 20130215
  2. BELIMUMAB [Suspect]
     Indication: SYSTEMIC LUPUS ERYTHEMATOSUS
     Dosage: 640 MG, UNK
     Route: 042
     Dates: start: 20120208
  3. PREDNISONE [Concomitant]
     Indication: SYSTEMIC LUPUS ERYTHEMATOSUS
     Dosage: UNK UKN, UNK
     Route: 048
  4. HYDROXYCHLOROQUINE [Concomitant]
     Indication: SYSTEMIC LUPUS ERYTHEMATOSUS
     Dosage: 200 MG, QD
     Route: 048
  5. FERROUS FUMARATE [Concomitant]
     Indication: ANAEMIA
     Dosage: 200 MG, UNK
     Route: 048
  6. KEPPRA [Concomitant]
     Indication: SYSTEMIC LUPUS ERYTHEMATOSUS
     Dosage: 1250 MG, BID
     Route: 048
  7. ALENDRONATE [Concomitant]
     Indication: OSTEOPOROSIS PROPHYLAXIS
     Dosage: 70 MG, UNK
     Route: 048
  8. ADCAL-D3 [Concomitant]
     Dosage: UNK UKN, UNK
  9. ASPIRIN [Concomitant]
     Indication: ANTIPHOSPHOLIPID SYNDROME
     Dosage: 150 MG, QD
  10. LANSOPRAZOLE [Concomitant]
     Indication: DYSPEPSIA
     Dosage: 30 MG, BID
  11. LOSARTAN [Concomitant]
     Indication: HYPERTENSION
     Dosage: 50 MG, QD
  12. LOSARTAN [Concomitant]
     Dosage: 50MG PER DAY
  13. OROTIC ACID [Concomitant]
     Indication: ANAEMIA
     Dosage: UNK UKN, UNK
  14. PARACETAMOL [Concomitant]
     Indication: ARTHRALGIA
     Dosage: UNK UKN, UNK
  15. GABAPENTIN [Concomitant]
     Indication: EPILEPSY
     Dosage: 600 MG, TID
  16. PREDNISOLONE [Concomitant]
     Dosage: UNK UKN, UNK
  17. FUROSEMIDE [Concomitant]
     Dosage: 40 MG, UNK

REACTIONS (8)
  - SLE arthritis [Recovered/Resolved]
  - Pleuritic pain [Unknown]
  - C-reactive protein increased [Recovered/Resolved]
  - Febrile neutropenia [Unknown]
  - Neutropenia [Recovered/Resolved]
  - Pyrexia [Recovered/Resolved]
  - Infection [Recovered/Resolved]
  - Liver function test abnormal [Recovered/Resolved]
